FAERS Safety Report 21680424 (Version 2)
Quarter: 2022Q4

REPORT INFORMATION
  Report Type: Spontaneous
  Country: US (occurrence: US)
  Receive Date: 20221205
  Receipt Date: 20221207
  Transmission Date: 20230112
  Serious: Yes (Death, Hospitalization)
  Sender: FDA-Public Use
  Company Number: US-JNJFOC-20221201019

PATIENT
  Age: 72 Year
  Sex: Female

DRUGS (1)
  1. TRABECTEDIN [Suspect]
     Active Substance: TRABECTEDIN
     Indication: Leiomyosarcoma
     Route: 065

REACTIONS (4)
  - Acute kidney injury [Fatal]
  - Liver injury [Fatal]
  - Encephalopathy [Fatal]
  - Rhabdomyolysis [Unknown]
